FAERS Safety Report 24452835 (Version 1)
Quarter: 2024Q4

REPORT INFORMATION
  Report Type: Spontaneous
  Country: US (occurrence: US)
  Receive Date: 20241017
  Receipt Date: 20241017
  Transmission Date: 20250115
  Serious: Yes (Other)
  Sender: SUNOVION
  Company Number: US-UROVANT SCIENCES GMBH-202404-URV-000570

PATIENT
  Sex: Female
  Weight: 65.76 kg

DRUGS (2)
  1. GEMTESA [Suspect]
     Active Substance: VIBEGRON
     Indication: Hypertonic bladder
     Dosage: 1 TAB, QD (MORNING)
     Route: 065
     Dates: start: 202403
  2. PROBIOTICS NOS [Concomitant]
     Active Substance: PROBIOTICS NOS
     Indication: Product used for unknown indication
     Dosage: UNK

REACTIONS (3)
  - Urinary retention [Unknown]
  - Flatulence [Not Recovered/Not Resolved]
  - Product availability issue [Unknown]
